FAERS Safety Report 9819247 (Version 2)
Quarter: 2014Q1

REPORT INFORMATION
  Report Type: Report from Study
  Country: CA (occurrence: CA)
  Receive Date: 20140115
  Receipt Date: 20140115
  Transmission Date: 20141002
  Serious: Yes (Life-Threatening, Hospitalization)
  Sender: FDA-Public Use
  Company Number: PHHY2013CA148747

PATIENT
  Age: 55 Year
  Sex: Male

DRUGS (8)
  1. GILENYA [Suspect]
     Indication: RELAPSING-REMITTING MULTIPLE SCLEROSIS
     Dosage: 0.5 MG, QD
     Route: 048
     Dates: start: 20131216, end: 20131216
  2. METOPROLOL [Interacting]
     Dosage: 25 MG, QD BID
  3. PLAVIX [Concomitant]
     Dosage: 75 MG, QD
  4. LOPRESSOR [Concomitant]
     Dosage: 25 MG, BID
  5. VIT D [Concomitant]
     Dosage: 2000 IU, QD
  6. LIPITOR [Concomitant]
     Dosage: 20 MG, QD
  7. FLEXERIL [Concomitant]
     Dosage: 10 MG, BID PRN
  8. PANTOLOC [Concomitant]
     Dosage: 40 MG, QD, PRN

REACTIONS (4)
  - Feeling abnormal [Unknown]
  - Atrioventricular block second degree [Recovered/Resolved]
  - Bradycardia [Recovered/Resolved]
  - Dizziness [Recovered/Resolved]
